FAERS Safety Report 5057078-4 (Version None)
Quarter: 2006Q3

REPORT INFORMATION
  Report Type: 
  Country: None (occurrence: None)
  Receive Date: 20060721
  Receipt Date: 20060404
  Transmission Date: 20061208
  Serious: Yes (Other)
  Sender: FDA-Public Use
  Company Number: CA-AVENTIS-200613609GDDC

PATIENT
  Age: 78 Year
  Sex: Female

DRUGS (5)
  1. KETEK [Suspect]
     Indication: SINUSITIS
     Route: 048
     Dates: start: 20050113, end: 20050120
  2. NORVASC [Concomitant]
     Route: 048
  3. MONOCOR [Concomitant]
     Dosage: DOSE: UNK
     Route: 048
  4. DYAZIDE [Concomitant]
     Dosage: DOSE: UNK
  5. CALCIUM GLUCONATE [Concomitant]
     Dosage: DOSE: UNK
     Route: 048

REACTIONS (7)
  - ALANINE AMINOTRANSFERASE INCREASED [None]
  - ASPARTATE AMINOTRANSFERASE INCREASED [None]
  - BLOOD BILIRUBIN INCREASED [None]
  - BLOOD LACTATE DEHYDROGENASE INCREASED [None]
  - FATIGUE [None]
  - GAMMA-GLUTAMYLTRANSFERASE INCREASED [None]
  - HEPATIC ENZYME INCREASED [None]
